FAERS Safety Report 8055589 (Version 4)
Quarter: 2013Q2

REPORT INFORMATION
  Report Type: Report from Study
  Country: US (occurrence: US)
  Receive Date: 20110726
  Receipt Date: 20130422
  Transmission Date: 20140414
  Serious: Yes (Life-Threatening, Other)
  Sender: FDA-Public Use
  Company Number: PHHY2011US12402

PATIENT
  Sex: Female
  Weight: 63.5 kg

DRUGS (5)
  1. DIOVAN HCT [Suspect]
     Dosage: 1 DF(VALS 80 MG, HYDR 12.5 MG), UNK
     Route: 048
     Dates: start: 201012
  2. DIOVAN HCT [Suspect]
     Dosage: 1 DF  (VALS 160 MG, HYDR 25 MG), QD
     Dates: start: 201101
  3. DIOVAN HCT [Suspect]
     Dosage: 1 DF (VALS 160 MG, HYDR 25 MG), UNK
     Route: 048
  4. TOPROL [Suspect]
     Dosage: UNK UKN, UNK
  5. ANTIHYPERTENSIVE DRUGS [Suspect]
     Dosage: UNK UKN, UNK

REACTIONS (24)
  - Feeling abnormal [Unknown]
  - Eyelid oedema [Unknown]
  - Hypertension [Unknown]
  - Headache [Unknown]
  - Malaise [Unknown]
  - Contusion [Unknown]
  - Stress [Unknown]
  - Erythema [Unknown]
  - Abasia [Unknown]
  - Ear infection [Unknown]
  - Vertigo [Unknown]
  - Peripheral coldness [Unknown]
  - Alopecia [Unknown]
  - Hypoaesthesia [Unknown]
  - Vomiting [Unknown]
  - Paraesthesia [Unknown]
  - Dyspnoea [Unknown]
  - Rash [Unknown]
  - Nasopharyngitis [Unknown]
  - Dry mouth [Unknown]
  - Insomnia [Unknown]
  - Fatigue [Unknown]
  - Cough [Unknown]
  - Vision blurred [Unknown]
